FAERS Safety Report 7310700-1 (Version None)
Quarter: 2011Q1

REPORT INFORMATION
  Report Type: 
  Country: None (occurrence: None)
  Receive Date: 20110224
  Receipt Date: 20110214
  Transmission Date: 20110831
  Serious: Yes (Hospitalization)
  Sender: FDA-Public Use
  Company Number: JP-SANOFI-AVENTIS-2010SA069218

PATIENT
  Age: 77 Year
  Sex: Female

DRUGS (4)
  1. ELPLAT [Suspect]
     Indication: LARGE INTESTINE CARCINOMA
     Route: 041
     Dates: start: 20100803
  2. XELODA [Suspect]
     Indication: LARGE INTESTINE CARCINOMA
     Route: 048
     Dates: start: 20100803, end: 20101026
  3. AVASTIN [Suspect]
     Indication: LARGE INTESTINE CARCINOMA
     Route: 041
     Dates: start: 20100803, end: 20100803
  4. AVASTIN [Suspect]
     Route: 041

REACTIONS (6)
  - SEPSIS [None]
  - CYSTITIS [None]
  - PYELONEPHRITIS ACUTE [None]
  - STOMATITIS [None]
  - DISSEMINATED INTRAVASCULAR COAGULATION [None]
  - CHEILITIS [None]
